FAERS Safety Report 8532708-0 (Version None)
Quarter: 2012Q3

REPORT INFORMATION
  Report Type: 
  Country: None (occurrence: None)
  Receive Date: 20120724
  Receipt Date: 20120719
  Transmission Date: 20120928
  Serious: Yes (Other)
  Sender: FDA-Public Use
  Company Number: PHHY2012BR062822

PATIENT
  Sex: Male

DRUGS (6)
  1. WARFARIN SODIUM [Suspect]
  2. LASIX [Suspect]
  3. SLOUCARD [Suspect]
  4. CONCOR [Suspect]
  5. DIOVAN [Suspect]
     Dosage: 1 DF, UNK
  6. HIGOSITINA [Suspect]
     Dosage: 0.5 DF, UNK

REACTIONS (6)
  - MOTOR DYSFUNCTION [None]
  - URINARY TRACT DISORDER [None]
  - ARRHYTHMIA [None]
  - BENIGN NEOPLASM OF PROSTATE [None]
  - POLLAKIURIA [None]
  - MALAISE [None]
